FAERS Safety Report 8206127-0 (Version None)
Quarter: 2012Q1

REPORT INFORMATION
  Report Type: 
  Country: None (occurrence: None)
  Receive Date: 20120313
  Receipt Date: 20120227
  Transmission Date: 20120608
  Serious: Yes (Hospitalization)
  Sender: FDA-Public Use
  Company Number: FR-WATSON-2012-04038

PATIENT
  Age: 21 Year
  Sex: Male

DRUGS (1)
  1. METRONIDAZOLE [Suspect]
     Indication: CENTRAL NERVOUS SYSTEM ABSCESS
     Dosage: 1.5 G DAILY FOR 22 DAYS
     Route: 048

REACTIONS (5)
  - CRANIAL NERVE PALSIES MULTIPLE [None]
  - VITH NERVE PARALYSIS [None]
  - PERIPHERAL SENSORY NEUROPATHY [None]
  - ENCEPHALOPATHY [None]
  - CEREBELLAR SYNDROME [None]
